FAERS Safety Report 19418680 (Version 1)
Quarter: 2021Q2

REPORT INFORMATION
  Report Type: Spontaneous
  Country: CA (occurrence: CA)
  Receive Date: 20210615
  Receipt Date: 20210615
  Transmission Date: 20210717
  Serious: Yes (Hospitalization, Other)
  Sender: FDA-Public Use
  Company Number: CA-JNJFOC-20210625294

PATIENT
  Age: 27 Year
  Sex: Male
  Weight: 58 kg

DRUGS (3)
  1. INFLIXIMAB, RECOMBINANT [Suspect]
     Active Substance: INFLIXIMAB
     Indication: COLITIS ULCERATIVE
     Route: 042
  2. IRON [Concomitant]
     Active Substance: IRON
     Dosage: 1.0 DOSAGE FORMS
     Route: 065
  3. IRON [Concomitant]
     Active Substance: IRON
     Route: 065

REACTIONS (6)
  - Cholangitis [Unknown]
  - Off label use [Unknown]
  - Blood bilirubin increased [Unknown]
  - Weight increased [Unknown]
  - Jaundice [Unknown]
  - Incorrect dose administered [Unknown]
